FAERS Safety Report 18479249 (Version 1)
Quarter: 2020Q4

REPORT INFORMATION
  Report Type: Spontaneous
  Country: GB (occurrence: GB)
  Receive Date: 20201109
  Receipt Date: 20201109
  Transmission Date: 20210114
  Serious: Yes (Death)
  Sender: FDA-Public Use
  Company Number: GB-TEVA-2020-GB-1845383

PATIENT
  Age: 34 Year
  Sex: Female

DRUGS (4)
  1. OTOMIZE [DEXAMETHASONE\NEOMYCIN SULFATE] [Concomitant]
     Active Substance: DEXAMETHASONE\NEOMYCIN SULFATE
  2. PREGABALIN. [Suspect]
     Active Substance: PREGABALIN
     Dosage: 400 MG
     Route: 048
     Dates: start: 20200720, end: 20200829
  3. STEXEROL-D3 [Concomitant]
     Dosage: 1000 IU
  4. VENLAFAXINE [Concomitant]
     Active Substance: VENLAFAXINE HYDROCHLORIDE
     Dosage: 75 MG

REACTIONS (1)
  - Sudden death [Fatal]

NARRATIVE: CASE EVENT DATE: 20200720
